FAERS Safety Report 8057357-2 (Version None)
Quarter: 2012Q1

REPORT INFORMATION
  Report Type: 
  Country: None (occurrence: None)
  Receive Date: 20120119
  Receipt Date: 20120117
  Transmission Date: 20120608
  Serious: Yes (Hospitalization)
  Sender: FDA-Public Use
  Company Number: US-PERRIGO-12US000388

PATIENT
  Age: 29 Year
  Sex: Female

DRUGS (1)
  1. IBUPROFEN [Suspect]
     Indication: PRODUCT USED FOR UNKNOWN INDICATION
     Dosage: UNK
     Route: 048

REACTIONS (6)
  - ANGIOEDEMA [None]
  - DYSPNOEA [None]
  - RESPIRATORY DISTRESS [None]
  - ANAPHYLACTIC REACTION [None]
  - URTICARIA [None]
  - THROAT TIGHTNESS [None]
